FAERS Safety Report 10741666 (Version 3)
Quarter: 2016Q3

REPORT INFORMATION
  Report Type: Spontaneous
  Country: SE (occurrence: SE)
  Receive Date: 20150127
  Receipt Date: 20160704
  Transmission Date: 20161109
  Serious: Yes (Disabling)
  Sender: FDA-Public Use
  Company Number: SE-AMGEN-SWESP2015006218

PATIENT
  Age: 75 Year
  Sex: Male

DRUGS (27)
  1. ONDANSETRON B BRAUN [Concomitant]
     Dosage: 2 MG/ML, UNK
  2. MORFIN MEDA [Concomitant]
     Active Substance: MORPHINE SULFATE
  3. CALCICHEW D3 FORTE [Concomitant]
     Active Substance: CALCIUM\CHOLECALCIFEROL
     Dosage: 1 DF, (500MG/800IU)
  4. XOFIGO [Concomitant]
     Active Substance: RADIUM RA-223 DICHLORIDE
     Dosage: 1000 KBQ/ML
  5. COCILLANA                          /00270901/ [Concomitant]
     Dosage: UNK
  6. NOVOMIX [Concomitant]
     Active Substance: INSULIN ASPART
     Dosage: 30 IU, (100 UNITS/ML)
  7. BETAPRED [Concomitant]
     Active Substance: BETAMETHASONE SODIUM PHOSPHATE
  8. XYLOCAIN                           /00033401/ [Concomitant]
     Active Substance: LIDOCAINE
     Dosage: 2 %, UNK
  9. DOLCONTIN [Concomitant]
     Active Substance: MORPHINE
  10. BETAPRED [Concomitant]
     Active Substance: BETAMETHASONE SODIUM PHOSPHATE
  11. ENANTON [Concomitant]
     Active Substance: LEUPROLIDE ACETATE
     Dosage: 11.25 MG, UNK
  12. DOLCONTIN [Concomitant]
     Active Substance: MORPHINE
  13. BETOLVEX                           /00056201/ [Concomitant]
     Active Substance: CYANOCOBALAMIN
     Dosage: 1 MG, UNK
  14. GABAPENTIN ACTAVIS [Concomitant]
     Active Substance: GABAPENTIN
     Dosage: 100 MG, UNK
  15. ZANTAC [Concomitant]
     Active Substance: RANITIDINE HYDROCHLORIDE
     Dosage: 25 MG/ML, UNK
  16. MORFIN MEDA [Concomitant]
     Active Substance: MORPHINE SULFATE
     Dosage: UNK
  17. XGEVA [Suspect]
     Active Substance: DENOSUMAB
     Indication: PROSTATE CANCER
     Dosage: 120 MG, QMO
     Route: 058
     Dates: start: 20140108
  18. PRIMPERAN [Concomitant]
     Active Substance: METOCLOPRAMIDE HYDROCHLORIDE
     Dosage: 10 MG, UNK
  19. MOVICOL [Concomitant]
     Active Substance: POLYETHYLENE GLYCOL 3350\POTASSIUM CHLORIDE\SODIUM BICARBONATE\SODIUM CHLORIDE
     Dosage: UNK
     Route: 048
  20. LAXIDO                             /07474401/ [Concomitant]
     Dosage: UNK
     Route: 048
  21. STILNOCT [Concomitant]
     Active Substance: ZOLPIDEM TARTRATE
     Dosage: 5 MG, UNK
  22. POSTAFEN                           /00060202/ [Concomitant]
     Active Substance: BUCLIZINE HYDROCHLORIDE
     Dosage: 25 MG, UNK
  23. PEVARYL                            /00418501/ [Concomitant]
     Active Substance: ECONAZOLE NITRATE
     Dosage: 1 %, UNK
     Route: 061
  24. PROPYLESS [Concomitant]
     Dosage: 200 MG/G, UNK
  25. TAVEGYL [Concomitant]
     Active Substance: CLEMASTINE FUMARATE
     Dosage: 1 MG/ML, UNK
  26. CILAXORAL [Concomitant]
     Dosage: 7.5 MG/ML, UNK
     Route: 048
  27. LOPERAMID MYLAN [Concomitant]
     Active Substance: LOPERAMIDE
     Dosage: 2 MG, UNK

REACTIONS (1)
  - Osteonecrosis of jaw [Not Recovered/Not Resolved]

NARRATIVE: CASE EVENT DATE: 20141223
